FAERS Safety Report 8609372-5 (Version None)
Quarter: 2012Q3

REPORT INFORMATION
  Report Type: 
  Country: None (occurrence: None)
  Receive Date: 20120821
  Receipt Date: 20120815
  Transmission Date: 20120928
  Serious: Yes (Other)
  Sender: FDA-Public Use
  Company Number: CA-UCBSA-063736

PATIENT
  Age: 23 Year
  Sex: Female
  Weight: 59.9 kg

DRUGS (4)
  1. MIRENA [Concomitant]
     Indication: CONTRACEPTION
  2. FOLIC ACID [Concomitant]
     Indication: RHEUMATOID ARTHRITIS
     Dosage: 6 DAYS PER WEEK
     Route: 048
     Dates: start: 20110501
  3. CIMZIA [Suspect]
     Indication: RHEUMATOID ARTHRITIS
     Dosage: ON HOLD
     Route: 058
     Dates: start: 20120329, end: 20120101
  4. METHOTREXATE SODIUM [Concomitant]
     Indication: RHEUMATOID ARTHRITIS
     Route: 058
     Dates: start: 20110501

REACTIONS (1)
  - VULVOVAGINAL MYCOTIC INFECTION [None]
